FAERS Safety Report 8618331 (Version 4)
Quarter: 2013Q4

REPORT INFORMATION
  Report Type: Spontaneous
  Country: CN (occurrence: CN)
  Receive Date: 20120615
  Receipt Date: 20131108
  Transmission Date: 20140711
  Serious: Yes (Other)
  Sender: FDA-Public Use
  Company Number: CN-009507513-1206USA02345

PATIENT
  Age: 82 Year
  Sex: Male
  Weight: 65 kg

DRUGS (7)
  1. ZOCOR [Suspect]
     Indication: HYPERCHOLESTEROLAEMIA
     Dosage: 40 MG, QD
     Route: 048
     Dates: end: 2012
  2. ZOCOR [Suspect]
     Indication: CORONARY ARTERY DISEASE
  3. ASPIRIN [Concomitant]
  4. ACARBOSE [Concomitant]
  5. METOPROLOL [Concomitant]
  6. LEVOTIROXINA S.O [Concomitant]
  7. INSULIN [Concomitant]

REACTIONS (6)
  - Drug-induced liver injury [Recovered/Resolved]
  - Myopathy [Recovered/Resolved]
  - Blood creatine phosphokinase increased [Recovering/Resolving]
  - Alanine aminotransferase increased [Recovered/Resolved]
  - Aspartate aminotransferase increased [Recovered/Resolved]
  - Blood creatinine abnormal [Unknown]
